FAERS Safety Report 6819946-X (Version None)
Quarter: 2010Q3

REPORT INFORMATION
  Report Type: 
  Country: None (occurrence: None)
  Receive Date: 20100707
  Receipt Date: 20100624
  Transmission Date: 20110219
  Serious: Yes (Hospitalization)
  Sender: FDA-Public Use
  Company Number: FR-ROCHE-711557

PATIENT
  Sex: Male

DRUGS (15)
  1. TAMIFLU [Suspect]
     Route: 048
     Dates: start: 20091210, end: 20091215
  2. ZOVIRAX [Suspect]
     Route: 048
     Dates: start: 20091211, end: 20091215
  3. ROVAMYCINE [Concomitant]
     Dosage: DRUG REPORTED AS ROVAMYCINE 1 MIU, ROUTE ALSO REPORTED AS PARENTERAL
     Route: 042
     Dates: start: 20091210, end: 20091216
  4. MORPHINE [Concomitant]
     Dosage: DRUG REPORTED AS MORPHINE AGUETTANT
     Route: 042
     Dates: start: 20091210, end: 20091216
  5. MOPRAL [Concomitant]
     Dosage: FORM: INFUSION
     Route: 042
  6. EFFERALGAN [Concomitant]
  7. SOLU-MEDROL [Concomitant]
     Dosage: FORM: INJECTABLE SOLUTION
     Route: 042
     Dates: start: 20091210
  8. SOLU-MEDROL [Concomitant]
     Route: 042
  9. SOLU-MEDROL [Concomitant]
     Route: 042
     Dates: end: 20091216
  10. RULID [Concomitant]
     Dates: start: 20091216, end: 20091219
  11. CORTANCYL [Concomitant]
     Dosage: ROUTE ALSO REPORTED AS PARENTERAL
     Dates: start: 20091216
  12. OXYCONTIN [Concomitant]
     Dosage: DRUG REPORTED AS OXYCONTIN LP
     Dates: start: 20091216
  13. OXYCODONE HCL [Concomitant]
  14. XYLOCAINE [Concomitant]
     Dosage: DRUG REPORTED AS XYLOCAINE BUCCAL GEL
     Route: 048
  15. NEXIUM [Concomitant]

REACTIONS (1)
  - RENAL FAILURE ACUTE [None]
